FAERS Safety Report 4616893-9 (Version None)
Quarter: 2005Q1

REPORT INFORMATION
  Report Type: 
  Country: None (occurrence: None)
  Receive Date: 20050321
  Receipt Date: 20050308
  Transmission Date: 20050727
  Serious: Yes (Hospitalization)
  Sender: FDA-Public Use
  Company Number: 2005042448

PATIENT
  Age: 77 Year
  Sex: Female

DRUGS (4)
  1. ATARAX [Suspect]
     Indication: ILL-DEFINED DISORDER
     Dosage: 25 MG, ORAL
     Route: 048
     Dates: end: 20041203
  2. TROPATEPINE HYDROCHLORIDE (TROPATEPINE HYDROCHLORIDE) [Suspect]
     Indication: ILL-DEFINED DISORDER
     Dosage: ORAL
     Route: 048
     Dates: end: 20041203
  3. RISPERDAL [Suspect]
     Indication: ILL-DEFINED DISORDER
     Dosage: 2 MG, ORAL
     Route: 048
  4. DONEPEZIL HCL [Suspect]
     Indication: ILL-DEFINED DISORDER
     Dosage: 10 MG, ORAL
     Route: 048
     Dates: start: 19980615

REACTIONS (6)
  - CONFUSIONAL STATE [None]
  - DERMATOSIS [None]
  - DISORIENTATION [None]
  - INCOHERENT [None]
  - PEMPHIGOID [None]
  - PYREXIA [None]
